FAERS Safety Report 5588888-2 (Version None)
Quarter: 2008Q1

REPORT INFORMATION
  Report Type: 
  Country: None (occurrence: None)
  Receive Date: 20080111
  Receipt Date: 20080109
  Transmission Date: 20080703
  Serious: Yes (Death, Hospitalization)
  Sender: FDA-Public Use
  Company Number: DE-JNJFOC-20070704281

PATIENT

DRUGS (14)
  1. RISPERDAL [Suspect]
     Indication: DEMENTIA
  2. MELPERONE [Suspect]
     Indication: DRUG USE FOR UNKNOWN INDICATION
     Route: 048
  3. NEUPRO [Suspect]
     Indication: DRUG USE FOR UNKNOWN INDICATION
     Route: 048
  4. BISOPROLOL [Concomitant]
  5. ASPIRIN [Concomitant]
  6. LEVODOPA [Concomitant]
  7. CARBIDOPA [Concomitant]
  8. STALEVO 100 [Concomitant]
  9. MADOPAR [Concomitant]
  10. CABASERIL [Concomitant]
  11. INSIDON [Concomitant]
  12. DURAGESIC-100 [Concomitant]
     Route: 062
  13. LAXOBERAL [Concomitant]
     Route: 048
  14. COTRIM DS [Concomitant]
     Route: 048

REACTIONS (1)
  - ELECTROMECHANICAL DISSOCIATION [None]
